FAERS Safety Report 5521945-5 (Version None)
Quarter: 2007Q4

REPORT INFORMATION
  Report Type: 
  Country: None (occurrence: None)
  Receive Date: 20071120
  Receipt Date: 20070315
  Transmission Date: 20080405
  Serious: No
  Sender: FDA-Public Use
  Company Number: US-BRISTOL-MYERS SQUIBB COMPANY-13715842

PATIENT
  Sex: Female

DRUGS (3)
  1. AVALIDE [Suspect]
     Dosage: ORIGINALLY TAKING 150 MG; NOW TAKING 300 MG. EVENT OCCURRED WITH BOTH DOSES
  2. PREVACID [Concomitant]
  3. ZYRTEC [Concomitant]

REACTIONS (2)
  - DYSGEUSIA [None]
  - PHARMACEUTICAL PRODUCT COMPLAINT [None]
